FAERS Safety Report 4437881-1 (Version None)
Quarter: 2004Q3

REPORT INFORMATION
  Report Type: 
  Country: None (occurrence: None)
  Receive Date: 20040827
  Receipt Date: 20040812
  Transmission Date: 20050211
  Serious: Yes (Other)
  Sender: FDA-Public Use
  Company Number: 2002-04720

PATIENT
  Age: 34 Year
  Sex: Male
  Weight: 84 kg

DRUGS (6)
  1. VIREAD [Suspect]
     Indication: HIV INFECTION
     Dosage: 300 MG, ONCE A DAY ,ORAL
     Route: 048
     Dates: start: 20010325, end: 20020314
  2. DIDANOSINE [Concomitant]
  3. KALETRA [Concomitant]
  4. NORVIR [Concomitant]
  5. AMPRENAVIR [Concomitant]
  6. FLUCONAZOLE [Concomitant]

REACTIONS (8)
  - BLOOD GLUCOSE INCREASED [None]
  - GLUCOSE URINE PRESENT [None]
  - HYPOPHOSPHATAEMIA [None]
  - LEUKOCYTURIA [None]
  - POLYDIPSIA [None]
  - POLYURIA [None]
  - PROTEINURIA [None]
  - RENAL TUBULAR DISORDER [None]
